FAERS Safety Report 4362856-0 (Version None)
Quarter: 2004Q2

REPORT INFORMATION
  Report Type: 
  Country: None (occurrence: None)
  Receive Date: 20040517
  Receipt Date: 20040402
  Transmission Date: 20050107
  Serious: No
  Sender: FDA-Public Use
  Company Number: S04-USA-01822-01

PATIENT
  Age: 63 Year

DRUGS (8)
  1. NAMENDA [Suspect]
     Dosage: 15 MG QD PO
     Route: 048
     Dates: start: 20040329
  2. NAMENDA [Suspect]
     Dosage: 5 MG QD PO
     Route: 048
     Dates: start: 20040315, end: 20040321
  3. NAMENDA [Suspect]
     Dosage: 10 MG QD PO
     Route: 048
     Dates: start: 20040321, end: 20040328
  4. AMIODARPONE [Concomitant]
  5. CARDIZEM [Concomitant]
  6. XANAX [Concomitant]
  7. PROTONOX [Concomitant]
  8. FLEXERIL [Concomitant]

REACTIONS (1)
  - BLOOD PRESSURE INCREASED [None]
